FAERS Safety Report 12617375 (Version 1)
Quarter: 2016Q3

REPORT INFORMATION
  Report Type: Spontaneous
  Country: US (occurrence: None)
  Receive Date: 20160802
  Receipt Date: 20160802
  Transmission Date: 20161109
  Serious: No
  Sender: FDA-Public Use
  Company Number: None

PATIENT

DRUGS (1)
  1. DOXYCYCLINE DOXYCYCLINE 100 [Suspect]
     Active Substance: DOXYCYCLINE
     Route: 048

REACTIONS (1)
  - Drug dispensing error [None]
